FAERS Safety Report 9281063 (Version 1)
Quarter: 2013Q2

REPORT INFORMATION
  Report Type: Spontaneous
  Country: US (occurrence: US)
  Receive Date: 20130509
  Receipt Date: 20130509
  Transmission Date: 20140414
  Serious: Yes (Hospitalization)
  Sender: FDA-Public Use
  Company Number: US-BAYER-2013-056684

PATIENT
  Age: 45 Year
  Sex: Female

DRUGS (2)
  1. YASMIN [Suspect]
  2. OVCON-35 [Concomitant]
     Indication: VAGINAL HAEMORRHAGE

REACTIONS (1)
  - Transient ischaemic attack [None]
